FAERS Safety Report 19402390 (Version 2)
Quarter: 2021Q3

REPORT INFORMATION
  Report Type: Spontaneous
  Country: JP (occurrence: JP)
  Receive Date: 20210610
  Receipt Date: 20210729
  Transmission Date: 20211014
  Serious: Yes (Death, Life-Threatening, Hospitalization)
  Sender: FDA-Public Use
  Company Number: JP-PFIZER INC-2020515146

PATIENT
  Age: 67 Year
  Sex: Male
  Weight: 57 kg

DRUGS (18)
  1. VOGLIBOSE [Concomitant]
     Active Substance: VOGLIBOSE
     Dosage: 0.3 MG, 3X/DAY
     Route: 048
  2. LYRICA [Concomitant]
     Active Substance: PREGABALIN
     Dosage: 75 MG, 2X/DAY
     Route: 048
  3. GLANATEC [Concomitant]
     Active Substance: RIPASUDIL HYDROCHLORIDE DIHYDRATE
     Dosage: UNK
  4. VIZIMPRO [Suspect]
     Active Substance: DACOMITINIB
     Indication: LUNG NEOPLASM MALIGNANT
     Dosage: 45 MG, 1X/DAY
     Route: 048
     Dates: start: 20200707, end: 20200715
  5. THYRADIN S [Concomitant]
     Active Substance: LEVOTHYROXINE SODIUM
     Indication: HYPOTHYROIDISM
     Dosage: 100 UG, 1X/DAY
     Route: 048
     Dates: start: 20191210
  6. LEVOFLOXACIN. [Concomitant]
     Active Substance: LEVOFLOXACIN
     Indication: CYSTITIS
     Dosage: 500 MG, 1X/DAY
     Route: 048
     Dates: start: 20200716, end: 20200718
  7. HIRUDOID [Concomitant]
     Active Substance: GLYCOSAMINOGLYCANS
     Dosage: UNK
     Route: 061
  8. KALLIDINOGENASE TOWA [Concomitant]
     Dosage: 50 UNIT, 2X/DAY
     Route: 048
  9. ROSUVASTATIN OD DSEP [Concomitant]
     Dosage: 2.5 MG, 1X/DAY
     Route: 048
  10. OXYNORM [Concomitant]
     Active Substance: OXYCODONE HYDROCHLORIDE
     Dosage: UNK
  11. TAPROS [Concomitant]
     Dosage: UNK
  12. HUMALOG [Concomitant]
     Active Substance: INSULIN LISPRO
     Dosage: 6, 5, 5 UNIT/DAY
     Route: 058
  13. VIZIMPRO [Suspect]
     Active Substance: DACOMITINIB
     Dosage: 30 MG, 1X/DAY
     Route: 048
     Dates: start: 20200717, end: 20200918
  14. PIOGLITAZONE TOWA [Concomitant]
     Dosage: 30 MG, 1X/DAY
     Route: 048
  15. ROSUVASTATIN KYORIN [Concomitant]
     Dosage: UNK
  16. INSULIN GLARGINE BS [Concomitant]
     Active Substance: INSULIN GLARGINE
     Dosage: 100 UG, 1X/DAY
     Route: 058
  17. OXYCONTIN TR [Concomitant]
     Active Substance: OXYCODONE HYDROCHLORIDE
     Dosage: UNK
  18. LEVOTHYROXINE SODIUM. [Concomitant]
     Active Substance: LEVOTHYROXINE SODIUM
     Dosage: UNK

REACTIONS (4)
  - Dermatitis acneiform [Recovering/Resolving]
  - Diarrhoea [Recovering/Resolving]
  - Cystitis [Unknown]
  - Interstitial lung disease [Fatal]

NARRATIVE: CASE EVENT DATE: 20200709
